FAERS Safety Report 7970317-2 (Version None)
Quarter: 2011Q4

REPORT INFORMATION
  Report Type: 
  Country: None (occurrence: None)
  Receive Date: 20111212
  Receipt Date: 20111201
  Transmission Date: 20120403
  Serious: Yes (Hospitalization)
  Sender: FDA-Public Use
  Company Number: DE-SANOFI-AVENTIS-2011SA080990

PATIENT
  Age: 51 Year
  Sex: Female

DRUGS (2)
  1. DOCETAXEL [Suspect]
     Route: 042
     Dates: start: 20110101
  2. TRASTUZUMAB [Suspect]
     Route: 042
     Dates: start: 20110101

REACTIONS (2)
  - EXTREMITY NECROSIS [None]
  - WRONG TECHNIQUE IN DRUG USAGE PROCESS [None]
